FAERS Safety Report 7923125-2 (Version None)
Quarter: 2011Q4

REPORT INFORMATION
  Report Type: 
  Country: None (occurrence: None)
  Receive Date: 20111117
  Receipt Date: 20110128
  Transmission Date: 20120403
  Serious: No
  Sender: FDA-Public Use
  Company Number: US-AMGEN-USASP2011005657

PATIENT
  Age: 30 Year
  Sex: Female

DRUGS (1)
  1. ENBREL [Suspect]
     Indication: RHEUMATOID ARTHRITIS
     Dosage: 25 MG, 2 TIMES/WK

REACTIONS (5)
  - NASOPHARYNGITIS [None]
  - RHEUMATOID ARTHRITIS [None]
  - MALAISE [None]
  - INFLUENZA LIKE ILLNESS [None]
  - INJECTION SITE PAIN [None]
